FAERS Safety Report 24011967 (Version 2)
Quarter: 2025Q3

REPORT INFORMATION
  Report Type: Spontaneous
  Country: US (occurrence: US)
  Receive Date: 20240625
  Receipt Date: 20250819
  Transmission Date: 20251020
  Serious: No
  Sender: SANOFI AVENTIS
  Company Number: US-SA-SAC20240618000083

PATIENT
  Age: 62 Year
  Sex: Female
  Weight: 79 kg

DRUGS (2)
  1. DUPIXENT [Suspect]
     Active Substance: DUPILUMAB
     Indication: Neurodermatitis
     Dosage: 300 MG, QOW
     Route: 058
  2. DUPIXENT [Suspect]
     Active Substance: DUPILUMAB
     Dosage: 300 MG, QW
     Route: 058

REACTIONS (5)
  - Renal disorder [Unknown]
  - Liver disorder [Unknown]
  - Rash [Unknown]
  - Product dose omission issue [Unknown]
  - Off label use [Unknown]
